FAERS Safety Report 9513950 (Version 1)
Quarter: 2013Q3

REPORT INFORMATION
  Report Type: Spontaneous
  Country: US (occurrence: US)
  Receive Date: 20130910
  Receipt Date: 20130910
  Transmission Date: 20140515
  Serious: Yes (Hospitalization, Other)
  Sender: FDA-Public Use
  Company Number: US-TAKEDA-2013TUS000289

PATIENT
  Sex: 0

DRUGS (4)
  1. DEXILANT [Suspect]
     Indication: GASTROOESOPHAGEAL REFLUX DISEASE
     Dosage: 60 MG, QD
     Route: 048
     Dates: start: 200909
  2. DEXILANT [Suspect]
     Indication: DYSPEPSIA
  3. ALL OTHER THERAPEUTIC PRODUCTS [Concomitant]
     Indication: PROPHYLAXIS
     Dosage: UNK
     Dates: start: 201109
  4. NIFEDIPINE [Concomitant]
     Indication: HYPERTENSION
     Dosage: 30 MG, BID
     Route: 048

REACTIONS (6)
  - Head injury [Unknown]
  - Cerebral haematoma [Recovered/Resolved]
  - Hepatic cirrhosis [Recovered/Resolved]
  - Abasia [Recovered/Resolved]
  - Fall [Unknown]
  - Hepatic enzyme increased [Not Recovered/Not Resolved]
